FAERS Safety Report 16318284 (Version 2)
Quarter: 2019Q2

REPORT INFORMATION
  Report Type: Spontaneous
  Country: GB (occurrence: GB)
  Receive Date: 20190516
  Receipt Date: 20190516
  Transmission Date: 20190711
  Serious: Yes (Hospitalization, Other)
  Sender: FDA-Public Use
  Company Number: GB-TEVA-2019-GB-1049233

PATIENT
  Age: 74 Year
  Sex: Male
  Weight: 74.8 kg

DRUGS (11)
  1. DUORESP SPIROMAX [Concomitant]
     Active Substance: BUDESONIDE\FORMOTEROL
  2. ACETYLSALICYLIC ACID [Suspect]
     Active Substance: ASPIRIN
     Indication: MYOCARDIAL ISCHAEMIA
     Route: 048
     Dates: start: 20110803, end: 20180330
  3. WARFARIN [Suspect]
     Active Substance: WARFARIN
     Indication: ATRIAL FIBRILLATION
     Dosage: AS PER INR
     Route: 048
     Dates: start: 20090703, end: 20180330
  4. AMOXICILLIN. [Concomitant]
     Active Substance: AMOXICILLIN
  5. BRALTUS [Concomitant]
     Active Substance: TIOTROPIUM BROMIDE
  6. OTOMIZE [Concomitant]
     Active Substance: DEXAMETHASONE\NEOMYCIN SULFATE
  7. PARACETAMOL [Concomitant]
     Active Substance: ACETAMINOPHEN
  8. FUROSEMIDE. [Concomitant]
     Active Substance: FUROSEMIDE
  9. SIMVASTATIN. [Concomitant]
     Active Substance: SIMVASTATIN
  10. BISOPROLOL [Concomitant]
     Active Substance: BISOPROLOL
  11. DIGOXIN. [Concomitant]
     Active Substance: DIGOXIN

REACTIONS (4)
  - Subdural haematoma [Recovered/Resolved]
  - Confusional state [Unknown]
  - Dizziness [Unknown]
  - Circulatory collapse [Unknown]

NARRATIVE: CASE EVENT DATE: 20180328
